FAERS Safety Report 20950856 (Version 1)
Quarter: 2022Q2

REPORT INFORMATION
  Report Type: Spontaneous
  Country: US (occurrence: US)
  Receive Date: 20220613
  Receipt Date: 20220613
  Transmission Date: 20220721
  Serious: Yes (Hospitalization, Other)
  Sender: FDA-Public Use
  Company Number: US-GLAXOSMITHKLINE-US2022090492

PATIENT

DRUGS (1)
  1. BREO ELLIPTA [Suspect]
     Active Substance: FLUTICASONE FUROATE\VILANTEROL TRIFENATATE
     Indication: Respiratory rate decreased
     Dosage: UNK, 100/25 INHALATION

REACTIONS (3)
  - Lung neoplasm malignant [Unknown]
  - Spinal operation [Unknown]
  - Product use in unapproved indication [Unknown]
